FAERS Safety Report 4303450-7 (Version None)
Quarter: 2004Q1

REPORT INFORMATION
  Report Type: 
  Country: None (occurrence: None)
  Receive Date: 20040223
  Receipt Date: 20040205
  Transmission Date: 20041129
  Serious: Yes (Life-Threatening, Hospitalization)
  Sender: FDA-Public Use
  Company Number: J200400587

PATIENT
  Age: 77 Year
  Sex: Male

DRUGS (1)
  1. MYSLEE-(ZOLPIDEM)-TABLET-10MG [Suspect]
     Dosage: 10 MG PO
     Route: 048
     Dates: start: 20040131, end: 20040131

REACTIONS (4)
  - BLOOD AMYLASE INCREASED [None]
  - LACUNAR INFARCTION [None]
  - LOSS OF CONSCIOUSNESS [None]
  - MEDICATION ERROR [None]
